FAERS Safety Report 8389046-9 (Version None)
Quarter: 2012Q2

REPORT INFORMATION
  Report Type: 
  Country: None (occurrence: None)
  Receive Date: 20120528
  Receipt Date: 20120519
  Transmission Date: 20120825
  Serious: Yes (Death, Other)
  Sender: FDA-Public Use
  Company Number: PHHY2012SD006205

PATIENT
  Sex: Female
  Weight: 49 kg

DRUGS (1)
  1. GLEEVEC [Suspect]
     Indication: CHRONIC MYELOID LEUKAEMIA
     Dosage: 400 MG, UNK
     Dates: start: 20090124

REACTIONS (4)
  - ANAEMIA [None]
  - DEATH [None]
  - VOMITING [None]
  - WHITE BLOOD CELL COUNT DECREASED [None]
